FAERS Safety Report 24242495 (Version 1)
Quarter: 2024Q3

REPORT INFORMATION
  Report Type: Spontaneous
  Country: JP (occurrence: JP)
  Receive Date: 20240823
  Receipt Date: 20240823
  Transmission Date: 20241016
  Serious: Yes (Hospitalization)
  Sender: BAUSCH AND LOMB
  Company Number: JP-BAUSCH-BL-2024-012774

PATIENT
  Age: 3 Decade
  Sex: Male

DRUGS (12)
  1. BUDESONIDE [Suspect]
     Active Substance: BUDESONIDE
     Indication: Colitis ulcerative
     Route: 048
     Dates: start: 20240331
  2. LIALDA [Suspect]
     Active Substance: MESALAMINE
     Indication: Colitis ulcerative
     Route: 042
  3. MIRIKIZUMAB [Suspect]
     Active Substance: MIRIKIZUMAB
     Indication: Colitis ulcerative
     Route: 041
     Dates: start: 20240426
  4. MIRIKIZUMAB [Suspect]
     Active Substance: MIRIKIZUMAB
     Dosage: SECOND DOSE
     Route: 042
     Dates: start: 20240521
  5. MIRIKIZUMAB [Suspect]
     Active Substance: MIRIKIZUMAB
     Dosage: THIRD DOSE
     Route: 042
     Dates: start: 20240618
  6. MIRIKIZUMAB [Suspect]
     Active Substance: MIRIKIZUMAB
     Dosage: FOURTH DOSE
     Route: 042
     Dates: start: 20240706
  7. PREDONINE [Concomitant]
     Active Substance: PREDNISOLONE
     Indication: Product used for unknown indication
     Dates: start: 20240422
  8. PREDONINE [Concomitant]
     Active Substance: PREDNISOLONE
     Dates: start: 20240521
  9. BUDESONIDE [Concomitant]
     Active Substance: BUDESONIDE
     Indication: Product used for unknown indication
  10. AMINO ACIDS\CARBOHYDRATES\MINERALS\SOYBEAN OIL\VITAMINS [Concomitant]
     Active Substance: AMINO ACIDS\CARBOHYDRATES\MINERALS\SOYBEAN OIL\VITAMINS
     Indication: Product used for unknown indication
  11. ENTYVIO [Concomitant]
     Active Substance: VEDOLIZUMAB
     Indication: Product used for unknown indication
  12. SIMPONI [Concomitant]
     Active Substance: GOLIMUMAB
     Indication: Product used for unknown indication
     Dates: start: 2024

REACTIONS (1)
  - Colitis ulcerative [Recovering/Resolving]

NARRATIVE: CASE EVENT DATE: 20240706
